FAERS Safety Report 4694179-4 (Version None)
Quarter: 2005Q2

REPORT INFORMATION
  Report Type: 
  Country: None (occurrence: None)
  Receive Date: 20050616
  Receipt Date: 20050616
  Transmission Date: 20051028
  Serious: Yes (Hospitalization, Disabling, Other)
  Sender: FDA-Public Use
  Company Number: None

PATIENT
  Age: 61 Year
  Sex: Female
  Weight: 104.3273 kg

DRUGS (3)
  1. NUTROPIN [Suspect]
     Indication: HYPOPITUITARISM
     Dosage: 7 MCG DAILY INJ
     Dates: start: 20030811, end: 20050526
  2. PROPYLTHIOURACIL [Concomitant]
  3. PREMARIN [Concomitant]

REACTIONS (2)
  - DRUG PRESCRIBING ERROR [None]
  - DRUG TOXICITY [None]
